FAERS Safety Report 8277006-8 (Version None)
Quarter: 2012Q2

REPORT INFORMATION
  Report Type: 
  Country: None (occurrence: None)
  Receive Date: 20120412
  Receipt Date: 20120329
  Transmission Date: 20120825
  Serious: Yes (Life-Threatening)
  Sender: FDA-Public Use
  Company Number: IT-CELGENEUS-083-21660-12033560

PATIENT
  Sex: Male

DRUGS (1)
  1. ABRAXANE [Suspect]
     Route: 065

REACTIONS (3)
  - MUCOSAL INFLAMMATION [None]
  - LEUKOPENIA [None]
  - THROMBOCYTOPENIA [None]
